FAERS Safety Report 17791887 (Version 3)
Quarter: 2020Q3

REPORT INFORMATION
  Report Type: Spontaneous
  Country: US (occurrence: US)
  Receive Date: 20200515
  Receipt Date: 20200701
  Transmission Date: 20201102
  Serious: Yes (Other)
  Sender: FDA-Public Use
  Company Number: US-PFIZER INC-2020192892

PATIENT
  Age: 26 Year
  Sex: Female

DRUGS (1)
  1. XELJANZ XR [Suspect]
     Active Substance: TOFACITINIB CITRATE
     Indication: RHEUMATOID ARTHRITIS
     Dosage: 11 MG, DAILY
     Route: 048
     Dates: start: 201909, end: 20200616

REACTIONS (7)
  - Chest pain [Unknown]
  - Product dose omission issue [Unknown]
  - Dyspepsia [Recovered/Resolved]
  - Abdominal pain lower [Recovered/Resolved]
  - Headache [Recovered/Resolved]
  - Dyspnoea [Not Recovered/Not Resolved]
  - Nausea [Recovered/Resolved]

NARRATIVE: CASE EVENT DATE: 2020
